FAERS Safety Report 5519966-1 (Version None)
Quarter: 2007Q4

REPORT INFORMATION
  Report Type: 
  Country: None (occurrence: None)
  Receive Date: 20071116
  Receipt Date: 20061220
  Transmission Date: 20080405
  Serious: No
  Sender: FDA-Public Use
  Company Number: US-BRISTOL-MYERS SQUIBB COMPANY-13623012

PATIENT
  Age: 28 Year
  Sex: Female

DRUGS (1)
  1. QUESTRAN [Suspect]
     Indication: INCREASED APPETITE
     Dosage: PATIENT HAD BEEN ON QUESTRAN 2X/DAY SINCE NOV 2005; COMPLAINED IN DEC 2006 OF TASTE
     Route: 048
     Dates: start: 20061201

REACTIONS (1)
  - DYSGEUSIA [None]
